FAERS Safety Report 7543076-5 (Version None)
Quarter: 2011Q2

REPORT INFORMATION
  Report Type: 
  Country: None (occurrence: None)
  Receive Date: 20110613
  Receipt Date: 20110602
  Transmission Date: 20111010
  Serious: Yes (Other)
  Sender: FDA-Public Use
  Company Number: PHHY2011CA13831

PATIENT
  Sex: Female
  Weight: 61.8 kg

DRUGS (9)
  1. EXTAVIA [Suspect]
     Indication: RELAPSING-REMITTING MULTIPLE SCLEROSIS
     Dosage: 4 MIU, QOD
     Route: 058
     Dates: start: 20110217
  2. EXTAVIA [Suspect]
     Dosage: 8 MIU, QOD
     Route: 058
     Dates: start: 20110217
  3. PRIMA ROSE OIL [Concomitant]
     Dosage: UNK
  4. VITAMIN D [Concomitant]
     Dosage: 2000 IU, UNK
     Route: 048
  5. CALCIUM W/MAGNESIUM [Concomitant]
     Dosage: UNK
  6. COD-LIVER OIL [Concomitant]
     Dosage: UNK
  7. GABAPENTIN [Concomitant]
     Dosage: 1500 MG (600 MG IN MORNIN AND 900 MG BD), UNK
     Route: 048
  8. CRANBERRY COMPLEX [Concomitant]
  9. IBUPROFEN (ADVIL) [Concomitant]
     Dosage: 400 MG, UNK

REACTIONS (10)
  - FEELING ABNORMAL [None]
  - FATIGUE [None]
  - MUSCLE SPASMS [None]
  - CHILLS [None]
  - PILOERECTION [None]
  - MYALGIA [None]
  - BALANCE DISORDER [None]
  - INJECTION SITE HAEMATOMA [None]
  - CHEST DISCOMFORT [None]
  - TREMOR [None]
